FAERS Safety Report 17363205 (Version 3)
Quarter: 2021Q2

REPORT INFORMATION
  Report Type: Spontaneous
  Country: US (occurrence: US)
  Receive Date: 20200203
  Receipt Date: 20210510
  Transmission Date: 20210716
  Serious: No
  Sender: FDA-Public Use
  Company Number: US-PFIZER INC-2019301785

PATIENT
  Age: 76 Year
  Sex: Male
  Weight: 113.4 kg

DRUGS (1)
  1. LYRICA [Suspect]
     Active Substance: PREGABALIN
     Indication: LIMB DISCOMFORT
     Dosage: 3 DF, DAILY (3 CAPSULES BY MOUTH DAILY)
     Route: 048

REACTIONS (4)
  - Visual impairment [Unknown]
  - Hypoacusis [Unknown]
  - Cognitive disorder [Unknown]
  - Anxiety [Unknown]
